FAERS Safety Report 16669510 (Version 2)
Quarter: 2019Q3

REPORT INFORMATION
  Report Type: Report from Study
  Country: US (occurrence: US)
  Receive Date: 20190805
  Receipt Date: 20190826
  Transmission Date: 20191004
  Serious: Yes (Hospitalization)
  Sender: FDA-Public Use
  Company Number: US-ACTELION-A-US2015-128594

PATIENT
  Sex: Female
  Weight: 48.98 kg

DRUGS (10)
  1. OPSUMIT [Suspect]
     Active Substance: MACITENTAN
     Indication: PULMONARY HYPERTENSION
     Dosage: 10 MG, QD
     Route: 048
     Dates: start: 20140805
  2. OPSUMIT [Suspect]
     Active Substance: MACITENTAN
     Indication: PULMONARY ARTERIAL HYPERTENSION
  3. FUROSEMIDE. [Concomitant]
     Active Substance: FUROSEMIDE
  4. CIALIS [Concomitant]
     Active Substance: TADALAFIL
  5. POTASSIUM CHLORIDE. [Concomitant]
     Active Substance: POTASSIUM CHLORIDE
  6. DILTIAZEM. [Concomitant]
     Active Substance: DILTIAZEM
  7. RESTASIS [Concomitant]
     Active Substance: CYCLOSPORINE
  8. VELETRI [Suspect]
     Active Substance: EPOPROSTENOL
     Indication: PULMONARY HYPERTENSION
     Dosage: 6 NG/KG, PER MIN
     Route: 042
     Dates: start: 20151203
  9. SPIRONOLACTONE. [Concomitant]
     Active Substance: SPIRONOLACTONE
  10. VELETRI [Suspect]
     Active Substance: EPOPROSTENOL
     Indication: PULMONARY ARTERIAL HYPERTENSION
     Dosage: 50 NG/KG, PER MIN
     Route: 042
     Dates: start: 20151203

REACTIONS (26)
  - Diarrhoea [Unknown]
  - Pulmonary hypertension [Unknown]
  - Decreased appetite [Not Recovered/Not Resolved]
  - Rhinorrhoea [Unknown]
  - Weight increased [Unknown]
  - General physical condition abnormal [Unknown]
  - Dyspnoea [Not Recovered/Not Resolved]
  - Abdominal cavity drainage [Unknown]
  - Catheter site pruritus [Unknown]
  - Pain [Unknown]
  - Skin irritation [Unknown]
  - Wheezing [Unknown]
  - Influenza like illness [Unknown]
  - Pain in extremity [Unknown]
  - Hospice care [Unknown]
  - Flushing [Unknown]
  - Nausea [Unknown]
  - Fluid retention [Unknown]
  - Abdominal discomfort [Not Recovered/Not Resolved]
  - Arthralgia [Unknown]
  - Weight decreased [Unknown]
  - Chest discomfort [Unknown]
  - Headache [Unknown]
  - Swelling [Unknown]
  - Palpitations [Unknown]
  - Rash [Not Recovered/Not Resolved]
